FAERS Safety Report 23978618 (Version 2)
Quarter: 2024Q3

REPORT INFORMATION
  Report Type: Report from Study
  Country: US (occurrence: None)
  Receive Date: 20240614
  Receipt Date: 20240718
  Transmission Date: 20241016
  Serious: Yes (Hospitalization)
  Sender: ASTRAZENECA
  Company Number: 2024A134185

PATIENT
  Age: 51 Year
  Sex: Female

DRUGS (3)
  1. FASENRA [Suspect]
     Active Substance: BENRALIZUMAB
     Route: 058
  2. SYMBICORT [Suspect]
     Active Substance: BUDESONIDE\FORMOTEROL FUMARATE DIHYDRATE
     Dosage: 160-4.5, 2 PUFFS
     Route: 055
  3. NUCALA [Suspect]
     Active Substance: MEPOLIZUMAB

REACTIONS (12)
  - Dyspnoea [Unknown]
  - Chest discomfort [Unknown]
  - Wheezing [Unknown]
  - Abdominal pain [Unknown]
  - Stridor [Unknown]
  - Arthralgia [Unknown]
  - Arthritis [Unknown]
  - Depressed mood [Unknown]
  - White blood cell count abnormal [Unknown]
  - Neutrophil count abnormal [Unknown]
  - Eosinophil count abnormal [Unknown]
  - Lymphocyte count abnormal [Unknown]
